FAERS Safety Report 5642549-X (Version None)
Quarter: 2008Q1

REPORT INFORMATION
  Report Type: 
  Country: None (occurrence: None)
  Receive Date: 20080228
  Receipt Date: 20080219
  Transmission Date: 20080703
  Serious: Yes (Hospitalization)
  Sender: FDA-Public Use
  Company Number: BE-WYE-G01084408

PATIENT
  Age: 50 Year
  Sex: Male

DRUGS (5)
  1. EFFEXOR [Suspect]
     Route: 048
  2. EFFEXOR [Suspect]
     Route: 048
  3. SEROQUEL [Concomitant]
  4. DEPAKENE [Concomitant]
  5. REMERON [Concomitant]

REACTIONS (3)
  - ATRIAL FIBRILLATION [None]
  - FALL [None]
  - TENDON RUPTURE [None]
